FAERS Safety Report 17332800 (Version 1)
Quarter: 2020Q1

REPORT INFORMATION
  Report Type: Spontaneous
  Country: US (occurrence: US)
  Receive Date: 20200128
  Receipt Date: 20200128
  Transmission Date: 20200409
  Serious: Yes (Hospitalization)
  Sender: FDA-Public Use
  Company Number: US-ASTRAZENECA-2020SE02956

PATIENT
  Sex: Female

DRUGS (12)
  1. SYNAGIS [Suspect]
     Active Substance: PALIVIZUMAB
     Indication: PREMATURE BABY
     Dosage: 15 MG/KG MONTHLY, STRENGTH -50 MG/0.5 VL.
     Route: 030
     Dates: start: 20191210
  2. SYNAGIS [Suspect]
     Active Substance: PALIVIZUMAB
     Indication: PREMATURE BABY
     Dosage: 15 MG/KG MONTHLY, STRENGTH -50 MG/0.5 VL.
     Route: 030
     Dates: start: 20191230
  3. SYNAGIS [Suspect]
     Active Substance: PALIVIZUMAB
     Indication: PREMATURE BABY
     Dosage: 5.3 MG/KG MONTHLY, STRENGTH -50 MG/0.5 VL.
     Route: 030
     Dates: start: 20191210
  4. SYNAGIS [Suspect]
     Active Substance: PALIVIZUMAB
     Indication: RESPIRATORY SYNCYTIAL VIRUS INFECTION
     Dosage: 15 MG/KG MONTHLY, STRENGTH -50 MG/0.5 VL.
     Route: 030
     Dates: start: 20191230
  5. SYNAGIS [Suspect]
     Active Substance: PALIVIZUMAB
     Indication: RESPIRATORY SYNCYTIAL VIRUS INFECTION
     Dosage: 5.3 MG/KG MONTHLY, STRENGTH -50 MG/0.5 VL.
     Route: 030
     Dates: start: 20191210
  6. SYNAGIS [Suspect]
     Active Substance: PALIVIZUMAB
     Indication: RESPIRATORY SYNCYTIAL VIRUS INFECTION
     Route: 030
     Dates: start: 20191207
  7. SYNAGIS [Suspect]
     Active Substance: PALIVIZUMAB
     Indication: RESPIRATORY SYNCYTIAL VIRUS INFECTION
     Route: 030
     Dates: start: 20191210
  8. SYNAGIS [Suspect]
     Active Substance: PALIVIZUMAB
     Indication: PREMATURE BABY
     Route: 030
     Dates: start: 20191207
  9. SYNAGIS [Suspect]
     Active Substance: PALIVIZUMAB
     Indication: PREMATURE BABY
     Route: 030
     Dates: start: 20191210
  10. SYNAGIS [Suspect]
     Active Substance: PALIVIZUMAB
     Indication: PREMATURE BABY
     Route: 030
     Dates: start: 20191210
  11. SYNAGIS [Suspect]
     Active Substance: PALIVIZUMAB
     Indication: RESPIRATORY SYNCYTIAL VIRUS INFECTION
     Dosage: 15 MG/KG MONTHLY, STRENGTH -50 MG/0.5 VL.
     Route: 030
     Dates: start: 20191210
  12. SYNAGIS [Suspect]
     Active Substance: PALIVIZUMAB
     Indication: RESPIRATORY SYNCYTIAL VIRUS INFECTION
     Route: 030
     Dates: start: 20191210

REACTIONS (1)
  - Respiratory syncytial virus infection [Unknown]
